FAERS Safety Report 6175513-5 (Version None)
Quarter: 2009Q2

REPORT INFORMATION
  Report Type: 
  Country: None (occurrence: None)
  Receive Date: 20090429
  Receipt Date: 20090421
  Transmission Date: 20091009
  Serious: Yes (Other)
  Sender: FDA-Public Use
  Company Number: GXKR2009GB04895

PATIENT
  Age: 85 Year
  Sex: Male
  Weight: 70 kg

DRUGS (12)
  1. SIMVASTATIN [Suspect]
     Indication: CEREBRAL ISCHAEMIA
     Dosage: ORAL
     Route: 048
     Dates: start: 20090310, end: 20090407
  2. ACETYLSALICYLIC ACID (ACETYLSALICYLIC ACID) [Concomitant]
  3. CALCIUM W/VITAMIN D NOS (CALCIUM, VITAMIN D NOS) [Concomitant]
  4. CLOBETASONE BUTYRATE (CLOBETASONE BUTYRATE) [Concomitant]
  5. DIPYRIDAMOLE [Concomitant]
  6. DOCUSATE SODIUM (DOCUSATE SODIUM) [Concomitant]
  7. HYDROCORTISONE [Concomitant]
  8. ISOPROPYL MYRISTATE (ISOPROPYL MYRISTATE) [Concomitant]
  9. ISPAGHULA HUSK (PLANTAGO OVATA HUSK) [Concomitant]
  10. LORATADINE [Concomitant]
  11. OMEPRAZOLE [Concomitant]
  12. PARAFFIN, LIQUID (PARAFFIN, LIQUID) [Concomitant]

REACTIONS (2)
  - ERYTHEMA MULTIFORME [None]
  - GOUT [None]
